FAERS Safety Report 5804244-3 (Version None)
Quarter: 2008Q3

REPORT INFORMATION
  Report Type: 
  Country: None (occurrence: None)
  Receive Date: 20080707
  Receipt Date: 20080627
  Transmission Date: 20090109
  Serious: Yes (Other)
  Sender: FDA-Public Use
  Company Number: GXKR2008GB05977

PATIENT
  Age: 3 Year
  Sex: Male
  Weight: 16 kg

DRUGS (1)
  1. TRIMETHOPRIM [Suspect]
     Indication: EAR INFECTION
     Dosage: 25 MG, QD, ORAL
     Route: 048
     Dates: start: 20080529, end: 20080613

REACTIONS (1)
  - NIGHTMARE [None]
